FAERS Safety Report 7461582-9 (Version None)
Quarter: 2011Q2

REPORT INFORMATION
  Report Type: 
  Country: None (occurrence: None)
  Receive Date: 20110428
  Receipt Date: 20110304
  Transmission Date: 20111010
  Serious: Yes (Other)
  Sender: FDA-Public Use
  Company Number: 2011S1001235

PATIENT
  Age: 56 Year
  Sex: Female

DRUGS (1)
  1. PHOSPHOSODA FLAVOR NOT SPECIFIED [Suspect]
     Indication: COLONOSCOPY
     Dosage: ; PO
     Route: 048

REACTIONS (4)
  - DIZZINESS [None]
  - NAUSEA [None]
  - ASTHENIA [None]
  - HYPOPHOSPHATAEMIA [None]
